FAERS Safety Report 25500219 (Version 1)
Quarter: 2025Q3

REPORT INFORMATION
  Report Type: Report from Study
  Country: US (occurrence: US)
  Receive Date: 20250701
  Receipt Date: 20250701
  Transmission Date: 20251020
  Serious: Yes (Other)
  Sender: ABBVIE
  Company Number: US-ABBVIE-6180847

PATIENT
  Age: 50 Year
  Sex: Female

DRUGS (1)
  1. SKYRIZI [Suspect]
     Active Substance: RISANKIZUMAB-RZAA
     Indication: Psoriasis
     Route: 058
     Dates: start: 20220101, end: 202406

REACTIONS (6)
  - Hysterectomy [Unknown]
  - Skin abrasion [Not Recovered/Not Resolved]
  - Psoriasis [Unknown]
  - Scar [Unknown]
  - Skin exfoliation [Unknown]
  - Skin laceration [Unknown]

NARRATIVE: CASE EVENT DATE: 20241201
